FAERS Safety Report 8383483-4 (Version None)
Quarter: 2012Q2

REPORT INFORMATION
  Report Type: 
  Country: None (occurrence: None)
  Receive Date: 20120524
  Receipt Date: 20120517
  Transmission Date: 20120825
  Serious: Yes (Death, Hospitalization, Other)
  Sender: FDA-Public Use
  Company Number: PHHY2012IN042673

PATIENT
  Sex: Male

DRUGS (3)
  1. TASIGNA [Suspect]
     Indication: CHRONIC MYELOID LEUKAEMIA
     Dosage: 400 MG, BID
     Route: 048
     Dates: start: 20111123
  2. TASIGNA [Suspect]
     Dosage: 400 MG, BID
     Route: 048
  3. TASIGNA [Suspect]
     Dosage: 1200 MG, BID
     Route: 048

REACTIONS (9)
  - DIABETES MELLITUS [None]
  - DYSPEPSIA [None]
  - CARDIAC DISORDER [None]
  - HEPATOMEGALY [None]
  - DECREASED APPETITE [None]
  - DRUG RESISTANCE [None]
  - SPLENOMEGALY [None]
  - VOMITING [None]
  - DYSPNOEA [None]
